FAERS Safety Report 19836903 (Version 1)
Quarter: 2021Q3

REPORT INFORMATION
  Report Type: Spontaneous
  Country: US (occurrence: US)
  Receive Date: 20210916
  Receipt Date: 20210916
  Transmission Date: 20211014
  Serious: Yes (Hospitalization)
  Sender: FDA-Public Use
  Company Number: US-LUPIN PHARMACEUTICALS INC.-2021-17396

PATIENT
  Age: 41 Year
  Sex: Male

DRUGS (5)
  1. CEFTAROLINE [Suspect]
     Active Substance: CEFTAROLINE
     Indication: INFECTION
     Dosage: UNK
     Route: 065
  2. DAPTOMYCIN. [Suspect]
     Active Substance: DAPTOMYCIN
     Indication: INFECTION
     Dosage: UNK
     Route: 065
  3. VANCOMYCIN [Suspect]
     Active Substance: VANCOMYCIN
     Indication: SEPTIC EMBOLUS
     Dosage: UNK
     Route: 065
  4. RIFAMPIN. [Suspect]
     Active Substance: RIFAMPIN
     Indication: INFECTION
     Dosage: UNK
     Route: 065
  5. NOREPINEPHRINE. [Concomitant]
     Active Substance: NOREPINEPHRINE
     Indication: VASOPRESSIVE THERAPY
     Dosage: UNK
     Route: 065

REACTIONS (2)
  - Drug ineffective [Unknown]
  - Off label use [None]
